FAERS Safety Report 6384688-4 (Version None)
Quarter: 2009Q4

REPORT INFORMATION
  Report Type: 
  Country: None (occurrence: None)
  Receive Date: 20091001
  Receipt Date: 20090922
  Transmission Date: 20100525
  Serious: Yes (Hospitalization, Other)
  Sender: FDA-Public Use
  Company Number: US-ASTRAZENECA-2009SE14499

PATIENT
  Age: 8 Year
  Sex: Male

DRUGS (5)
  1. SEROQUEL [Suspect]
     Dosage: 300 MG AT NIGHT AND 100 MG IN  MORNING
     Route: 048
     Dates: end: 20090919
  2. GEODON [Suspect]
  3. METHYLIN ER [Concomitant]
  4. OXCARBAZEPINE [Concomitant]
  5. GUANFACINE HYDROCHLORIDE [Concomitant]

REACTIONS (3)
  - AGGRESSION [None]
  - DRUG DOSE OMISSION [None]
  - OVERDOSE [None]
